FAERS Safety Report 21213617 (Version 12)
Quarter: 2024Q1

REPORT INFORMATION
  Report Type: Spontaneous
  Country: ES (occurrence: ES)
  Receive Date: 20220816
  Receipt Date: 20240129
  Transmission Date: 20240410
  Serious: Yes (Life-Threatening, Hospitalization, Other)
  Sender: FDA-Public Use
  Company Number: ES-GT-20220909

PATIENT
  Age: 52 Year
  Sex: Male

DRUGS (48)
  1. DARUNAVIR [Suspect]
     Active Substance: DARUNAVIR
     Indication: HIV antibody
     Dosage: 600 MG, 2X PER DAY
     Route: 065
     Dates: start: 20100824
  2. DARUNAVIR [Suspect]
     Active Substance: DARUNAVIR
     Indication: HIV infection
     Route: 065
     Dates: start: 20140527
  3. DARUNAVIR [Suspect]
     Active Substance: DARUNAVIR
     Indication: HIV infection
  4. DARUNAVIR [Suspect]
     Active Substance: DARUNAVIR
     Indication: HIV infection
  5. QUETIAPINE [Interacting]
     Active Substance: QUETIAPINE
     Indication: Antipsychotic therapy
     Dosage: 300 MG, 2X PER DAY
     Route: 065
     Dates: start: 20170426
  6. CLOTHIAPINE [Suspect]
     Active Substance: CLOTHIAPINE
     Indication: Product used for unknown indication
     Route: 065
  7. FENOFIBRATE [Concomitant]
     Active Substance: FENOFIBRATE
     Indication: Hyperlipidaemia
     Dosage: 145 MG, 1X PER DAY
     Route: 065
     Dates: start: 20200420
  8. FENOFIBRATE [Concomitant]
     Active Substance: FENOFIBRATE
     Indication: Pain
     Dosage: 145 MG, 1X PER DAY
     Route: 065
     Dates: start: 20211015
  9. FENOFIBRATE [Concomitant]
     Active Substance: FENOFIBRATE
     Indication: Hyperlipidaemia
  10. FENOFIBRATE [Concomitant]
     Active Substance: FENOFIBRATE
     Indication: Metabolic syndrome
  11. FENOFIBRATE [Concomitant]
     Active Substance: FENOFIBRATE
     Indication: Lipids
  12. DULAGLUTIDE [Concomitant]
     Active Substance: DULAGLUTIDE
     Indication: Diabetes prophylaxis
     Dosage: 1.5 MG 1 X PER WEEK
     Route: 065
     Dates: start: 20190529
  13. DULAGLUTIDE [Concomitant]
     Active Substance: DULAGLUTIDE
     Indication: Metabolic syndrome
     Route: 065
     Dates: start: 20190313
  14. DULAGLUTIDE [Concomitant]
     Active Substance: DULAGLUTIDE
     Indication: Diabetes mellitus
  15. ETRAVIRINE [Concomitant]
     Active Substance: ETRAVIRINE
     Indication: HIV infection
     Dosage: 200 MG, 1X PER DAY
     Route: 065
     Dates: start: 20140527
  16. ETRAVIRINE [Concomitant]
     Active Substance: ETRAVIRINE
     Indication: Diabetes mellitus
  17. ETRAVIRINE [Concomitant]
     Active Substance: ETRAVIRINE
     Indication: HIV infection
  18. CLORAZEPATE DIPOTASSIUM [Concomitant]
     Active Substance: CLORAZEPATE DIPOTASSIUM
     Indication: Generalised anxiety disorder
     Dosage: 15 MG/ 4.5H
     Route: 065
     Dates: start: 20190221
  19. CLORAZEPATE DIPOTASSIUM [Concomitant]
     Active Substance: CLORAZEPATE DIPOTASSIUM
     Indication: Anxiolytic therapy
  20. INSULIN ASPART [Concomitant]
     Active Substance: INSULIN ASPART
     Indication: Diabetes mellitus
     Dosage: 10 INTERNATIONAL UNIT, 3 TIMES A DAY
     Route: 065
     Dates: start: 20200707
  21. INSULIN ASPART [Concomitant]
     Active Substance: INSULIN ASPART
     Indication: HIV infection
     Route: 065
     Dates: start: 20140527
  22. INSULIN ASPART [Concomitant]
     Active Substance: INSULIN ASPART
     Indication: Diabetes prophylaxis
  23. INSULIN ASPART [Concomitant]
     Active Substance: INSULIN ASPART
     Indication: Metabolic syndrome
  24. LORMETAZEPAM [Concomitant]
     Active Substance: LORMETAZEPAM
     Indication: Hypnotherapy
     Dosage: 2 MG, 1X PER DAY
     Route: 065
     Dates: start: 20171216
  25. LORMETAZEPAM [Concomitant]
     Active Substance: LORMETAZEPAM
     Indication: Ulcer
     Route: 065
     Dates: start: 20191127
  26. LORMETAZEPAM [Concomitant]
     Active Substance: LORMETAZEPAM
     Indication: Insomnia
  27. ROSUVASTATIN [Concomitant]
     Active Substance: ROSUVASTATIN
     Indication: Hyperlipidaemia
     Dosage: 5 MG, 1X PER DAY
     Route: 065
     Dates: start: 20180511
  28. ROSUVASTATIN [Concomitant]
     Active Substance: ROSUVASTATIN
     Indication: Hyperlipidaemia
     Route: 065
     Dates: start: 20200429
  29. ROSUVASTATIN [Concomitant]
     Active Substance: ROSUVASTATIN
     Indication: Hyperlipidaemia
  30. ROSUVASTATIN [Concomitant]
     Active Substance: ROSUVASTATIN
     Indication: Metabolic syndrome
  31. ROSUVASTATIN [Concomitant]
     Active Substance: ROSUVASTATIN
     Indication: Lipids
  32. METAMIZOLE [Concomitant]
     Active Substance: METAMIZOLE
     Indication: Analgesic therapy
     Dosage: 575 MG, 3X PER DAY
     Route: 065
     Dates: start: 20210707
  33. METAMIZOLE [Concomitant]
     Active Substance: METAMIZOLE
     Indication: Anxiolytic therapy
     Route: 065
     Dates: start: 20190221
  34. METAMIZOLE [Concomitant]
     Active Substance: METAMIZOLE
     Indication: Analgesic therapy
  35. METAMIZOLE [Concomitant]
     Active Substance: METAMIZOLE
     Indication: Product used for unknown indication
  36. METAMIZOLE [Concomitant]
     Active Substance: METAMIZOLE
     Indication: Analgesic therapy
  37. ACETAMINOPHEN [Concomitant]
     Active Substance: ACETAMINOPHEN
     Indication: Analgesic therapy
     Dosage: 1 G, 2X PER DAY
     Route: 065
     Dates: start: 20210721
  38. ACETAMINOPHEN [Concomitant]
     Active Substance: ACETAMINOPHEN
     Indication: Pain
     Route: 065
     Dates: start: 20150529
  39. ACETAMINOPHEN [Concomitant]
     Active Substance: ACETAMINOPHEN
     Indication: Diabetes mellitus
  40. ACETAMINOPHEN [Concomitant]
     Active Substance: ACETAMINOPHEN
     Indication: Analgesic therapy
  41. INSULIN GLARGINE [Concomitant]
     Active Substance: INSULIN GLARGINE
     Indication: Diabetes mellitus
     Dosage: 60 IU, 1X PER DAY
     Route: 065
     Dates: start: 20190527
  42. INSULIN GLARGINE [Concomitant]
     Active Substance: INSULIN GLARGINE
     Indication: Metabolic syndrome
  43. LOSARTAN [Concomitant]
     Active Substance: LOSARTAN
     Indication: Hypertension
     Dosage: 100 MG, 1X PER DAY
     Route: 065
     Dates: start: 20181013
  44. LOSARTAN [Concomitant]
     Active Substance: LOSARTAN
     Indication: Metabolic syndrome
  45. OMEPRAZOLE [Concomitant]
     Active Substance: OMEPRAZOLE
     Indication: Ulcer
     Dosage: 40 MG, 1X PER DAY
     Route: 065
     Dates: start: 20191127
  46. ZOLPIDEM [Concomitant]
     Active Substance: ZOLPIDEM TARTRATE
     Indication: Hypnotherapy
     Dosage: 10 MG, 1X PER DAY
     Route: 065
     Dates: start: 20190313
  47. ZOLPIDEM [Concomitant]
     Active Substance: ZOLPIDEM TARTRATE
     Indication: Insomnia
  48. GABAPENTIN [Concomitant]
     Active Substance: GABAPENTIN
     Indication: Analgesic therapy
     Route: 065
     Dates: start: 20211015

REACTIONS (15)
  - Nervousness [Recovered/Resolved]
  - Tachycardia [Recovered/Resolved]
  - Confusional state [Recovered/Resolved]
  - Agitation [Recovered/Resolved]
  - Drug interaction [Recovered/Resolved]
  - Drug level increased [Recovered/Resolved]
  - Insomnia [Recovered/Resolved]
  - Insomnia [Recovered/Resolved]
  - Confusional state [Recovered/Resolved]
  - Tachycardia [Recovered/Resolved]
  - Restlessness [Recovered/Resolved]
  - Condition aggravated [Recovered/Resolved]
  - Drug interaction [Recovered/Resolved]
  - Nervousness [Recovered/Resolved]
  - Nervousness [Recovered/Resolved]
